FAERS Safety Report 15858424 (Version 1)
Quarter: 2019Q1

REPORT INFORMATION
  Report Type: Spontaneous
  Country: US (occurrence: US)
  Receive Date: 20190123
  Receipt Date: 20190123
  Transmission Date: 20190417
  Serious: No
  Sender: FDA-Public Use
  Company Number: US-PFIZER INC-2019029881

PATIENT
  Age: 72 Year
  Sex: Female

DRUGS (1)
  1. EUCRISA [Suspect]
     Active Substance: CRISABOROLE
     Dosage: UNK, AS NEEDED (APPLY TO AFFECTED SKIN ONCE A DAY AS NEEDED)
     Route: 061
     Dates: start: 201808

REACTIONS (2)
  - Product use issue [Unknown]
  - Drug ineffective [Unknown]
